FAERS Safety Report 20195611 (Version 2)
Quarter: 2021Q4

REPORT INFORMATION
  Report Type: Spontaneous
  Country: FR (occurrence: FR)
  Receive Date: 20211216
  Receipt Date: 20211220
  Transmission Date: 20220304
  Serious: Yes (Hospitalization)
  Sender: FDA-Public Use
  Company Number: None

PATIENT
  Age: 84 Year
  Sex: Male

DRUGS (8)
  1. EPLERENONE [Suspect]
     Active Substance: EPLERENONE
     Dosage: UNK
     Dates: start: 20211113, end: 20211113
  2. ELIQUIS [Suspect]
     Active Substance: APIXABAN
     Dosage: UNK
     Route: 065
     Dates: start: 20211113, end: 20211113
  3. SILODOSIN [Suspect]
     Active Substance: SILODOSIN
     Dosage: 8 MG, SINGLE
     Route: 048
     Dates: start: 20211113, end: 20211113
  4. LEVOTHYROXINE [Suspect]
     Active Substance: LEVOTHYROXINE
     Dosage: 1 DF, SINGLE
     Route: 048
     Dates: start: 20211113, end: 20211113
  5. FUROSEMIDE [Suspect]
     Active Substance: FUROSEMIDE
     Dosage: UNK
     Dates: start: 20211113, end: 20211113
  6. DAPAGLIFLOZIN [Suspect]
     Active Substance: DAPAGLIFLOZIN
     Dosage: UNK
     Dates: start: 20211113, end: 20211113
  7. POTASSIUM CHLORIDE [Suspect]
     Active Substance: POTASSIUM CHLORIDE
     Dosage: UNK
     Dates: start: 20211113, end: 20211113
  8. DIGOXIN [Suspect]
     Active Substance: DIGOXIN
     Dosage: UNK
     Dates: start: 20211113, end: 20211113

REACTIONS (3)
  - Accidental overdose [Unknown]
  - Inappropriate schedule of product administration [Unknown]
  - Malaise [Recovered/Resolved]

NARRATIVE: CASE EVENT DATE: 20211113
